FAERS Safety Report 13621098 (Version 1)
Quarter: 2017Q2

REPORT INFORMATION
  Report Type: Spontaneous
  Country: US (occurrence: US)
  Receive Date: 20170607
  Receipt Date: 20170607
  Transmission Date: 20170830
  Serious: No
  Sender: FDA-Public Use
  Company Number: US-TEVA-772334ACC

PATIENT
  Sex: Female

DRUGS (1)
  1. PROPAFENONE. [Suspect]
     Active Substance: PROPAFENONE
     Indication: HEART RATE INCREASED
     Dates: start: 20170318

REACTIONS (3)
  - Heart rate increased [Unknown]
  - Terminal insomnia [Unknown]
  - Drug effect incomplete [Unknown]
